FAERS Safety Report 10892221 (Version 1)
Quarter: 2015Q1

REPORT INFORMATION
  Report Type: Spontaneous
  Country: CA (occurrence: CA)
  Receive Date: 20150306
  Receipt Date: 20150306
  Transmission Date: 20150721
  Serious: Yes (Hospitalization)
  Sender: FDA-Public Use
  Company Number: CA-PFIZER INC-2015077196

PATIENT
  Sex: Female

DRUGS (5)
  1. HYDROCORTISONE. [Suspect]
     Active Substance: HYDROCORTISONE
     Dosage: 16 MG, SINGLE
     Route: 042
  2. VINCRISTINE SULFATE. [Suspect]
     Active Substance: VINCRISTINE SULFATE
     Dosage: 1.8 MG, UNK
     Route: 042
  3. NEUPOGEN [Concomitant]
     Active Substance: FILGRASTIM
  4. CYTARABINE. [Suspect]
     Active Substance: CYTARABINE
     Dosage: 40 MG, SINGLE
     Route: 042
  5. METHOTREXATE SODIUM. [Suspect]
     Active Substance: METHOTREXATE SODIUM
     Dosage: 12 MG, SINGLE
     Route: 042

REACTIONS (1)
  - Febrile neutropenia [Unknown]
